FAERS Safety Report 11068989 (Version 1)
Quarter: 2015Q2

REPORT INFORMATION
  Report Type: Report from Study
  Country: AT (occurrence: AT)
  Receive Date: 20150427
  Receipt Date: 20150427
  Transmission Date: 20150821
  Serious: Yes (Other)
  Sender: FDA-Public Use
  Company Number: PHHY2015AT035476

PATIENT
  Sex: Female
  Weight: 68 kg

DRUGS (2)
  1. EVEROLIMUS [Suspect]
     Active Substance: EVEROLIMUS
     Indication: BREAST CANCER METASTATIC
     Dosage: 10 MG
     Route: 048
     Dates: start: 20150227
  2. EXEMESTANE. [Suspect]
     Active Substance: EXEMESTANE
     Indication: BREAST CANCER METASTATIC
     Dosage: 25 MG
     Route: 065
     Dates: start: 20150227

REACTIONS (10)
  - Gamma-glutamyltransferase increased [Unknown]
  - Pruritus generalised [Recovered/Resolved]
  - Diarrhoea [Not Recovered/Not Resolved]
  - Eye irritation [Recovered/Resolved]
  - Stomatitis [Not Recovered/Not Resolved]
  - Peripheral swelling [Not Recovered/Not Resolved]
  - Blood lactate dehydrogenase increased [Unknown]
  - Arthropathy [Not Recovered/Not Resolved]
  - Brain natriuretic peptide increased [Unknown]
  - Platelet count decreased [Unknown]

NARRATIVE: CASE EVENT DATE: 201503
